FAERS Safety Report 24688819 (Version 1)
Quarter: 2024Q4

REPORT INFORMATION
  Report Type: Spontaneous
  Country: BR (occurrence: BR)
  Receive Date: 20241203
  Receipt Date: 20241203
  Transmission Date: 20250115
  Serious: Yes (Other)
  Sender: NOVO NORDISK
  Company Number: BR-NOVOPROD-1324532

PATIENT
  Age: 870 Month
  Sex: Male

DRUGS (4)
  1. TRESIBA [Suspect]
     Active Substance: INSULIN DEGLUDEC
     Indication: Diabetes mellitus
     Dosage: 30 IU, QD (IN THE MORNING)
     Dates: start: 202408
  2. TRESIBA [Suspect]
     Active Substance: INSULIN DEGLUDEC
     Dosage: 40 IU, QD (INCREASED DOSE)
  3. NOVOLIN R [Concomitant]
     Active Substance: INSULIN HUMAN
     Indication: Diabetes mellitus
     Dosage: 10 IU, BID (AT LUNCH AND DINNER)
  4. NOVOLIN R [Concomitant]
     Active Substance: INSULIN HUMAN
     Dosage: UNK (ADDS 2 MORE UNITS ONLY IF BLOOD GLUCOSE TEST WAS ABOVE 180)

REACTIONS (2)
  - Eye haemorrhage [Unknown]
  - Diabetes mellitus inadequate control [Recovered/Resolved]
